FAERS Safety Report 7601479-4 (Version None)
Quarter: 2011Q3

REPORT INFORMATION
  Report Type: 
  Country: None (occurrence: None)
  Receive Date: 20110711
  Receipt Date: 20110706
  Transmission Date: 20111222
  Serious: Yes (Other)
  Sender: FDA-Public Use
  Company Number: CA-ABBOTT-11P-028-0836725-00

PATIENT
  Age: 28 Year
  Sex: Female
  Weight: 63 kg

DRUGS (4)
  1. ABACAVIR SULFATE AND LAMIVUDINE [Suspect]
     Indication: PRODUCT USED FOR UNKNOWN INDICATION
     Route: 048
  2. KALETRA [Suspect]
     Route: 048
  3. ABACAVIR SULFATE AND LAMIVUDINE [Suspect]
     Route: 048
  4. KALETRA [Suspect]
     Indication: PRODUCT USED FOR UNKNOWN INDICATION
     Route: 048

REACTIONS (1)
  - BLOOD ALKALINE PHOSPHATASE INCREASED [None]
